FAERS Safety Report 5705761-7 (Version None)
Quarter: 2008Q2

REPORT INFORMATION
  Report Type: 
  Country: None (occurrence: None)
  Receive Date: 20080414
  Receipt Date: 20080414
  Transmission Date: 20081010
  Serious: Yes (Other)
  Sender: FDA-Public Use
  Company Number: None

PATIENT
  Age: 21 Year
  Sex: Male
  Weight: 50.8029 kg

DRUGS (1)
  1. COMPAZINE [Suspect]
     Indication: NAUSEA
     Dosage: 1 SUPORISTY 1 EVERY SIX HOURS OR AS NEEDED
     Dates: start: 20080401

REACTIONS (3)
  - DYSPNOEA [None]
  - HEART RATE INCREASED [None]
  - UNEVALUABLE EVENT [None]
